FAERS Safety Report 4886647-7 (Version None)
Quarter: 2006Q1

REPORT INFORMATION
  Report Type: 
  Country: None (occurrence: None)
  Receive Date: 20060120
  Receipt Date: 20060111
  Transmission Date: 20060701
  Serious: Yes (Other)
  Sender: FDA-Public Use
  Company Number: US-BRISTOL-MYERS SQUIBB COMPANY-13248141

PATIENT
  Age: 33 Year
  Sex: Female
  Weight: 177 kg

DRUGS (13)
  1. ABILIFY [Suspect]
     Indication: SCHIZOAFFECTIVE DISORDER
     Route: 048
     Dates: start: 20051020
  2. CELEXA [Concomitant]
  3. DIOVAN HCT [Concomitant]
  4. QUININE [Concomitant]
  5. FUROSEMIDE [Concomitant]
  6. ATENOLOL [Concomitant]
  7. METFORMIN HCL [Concomitant]
  8. DMAX [Concomitant]
  9. PHENYTEK [Concomitant]
  10. ESTROSTEP FE [Concomitant]
  11. POTASSIUM [Concomitant]
  12. PREVACID [Concomitant]
  13. LORATADINE [Concomitant]

REACTIONS (9)
  - BRONCHITIS CHRONIC [None]
  - CHILLS [None]
  - NAUSEA [None]
  - OEDEMA PERIPHERAL [None]
  - PYREXIA [None]
  - SINUSITIS [None]
  - SWELLING FACE [None]
  - VOMITING [None]
  - WEIGHT INCREASED [None]
